FAERS Safety Report 4312429-0 (Version None)
Quarter: 2004Q1

REPORT INFORMATION
  Report Type: 
  Country: None (occurrence: None)
  Receive Date: 20040302
  Receipt Date: 20031219
  Transmission Date: 20041129
  Serious: No
  Sender: FDA-Public Use
  Company Number: 200330801BWH

PATIENT
  Age: 62 Year
  Sex: Male

DRUGS (17)
  1. LEVITRA [Suspect]
     Indication: ERECTILE DYSFUNCTION
     Dosage: 10 MG, TOTAL DAILY, ORAL
     Route: 048
     Dates: start: 20031212
  2. PREDNISONE [Concomitant]
  3. OSCAL [Concomitant]
  4. FOSAMAX [Concomitant]
  5. ASPIRIN [Concomitant]
  6. CARDIZEM [Concomitant]
  7. DAYPRO [Concomitant]
  8. VITAMIN C [Concomitant]
  9. VITAMIN E [Concomitant]
  10. LIPITOR [Concomitant]
  11. PLAQUENIL [Concomitant]
  12. ULTRAM [Concomitant]
  13. PROTONIX [Concomitant]
  14. GLYSET [Concomitant]
  15. ALBUTEROL [Concomitant]
  16. ADVAIR DISKUS 100/50 [Concomitant]
  17. VIAGRA [Concomitant]

REACTIONS (1)
  - ERECTILE DYSFUNCTION [None]
